FAERS Safety Report 4969063-9 (Version None)
Quarter: 2006Q2

REPORT INFORMATION
  Report Type: 
  Country: None (occurrence: None)
  Receive Date: 20060411
  Receipt Date: 20060313
  Transmission Date: 20061013
  Serious: Yes (Hospitalization, Disabling, Other)
  Sender: FDA-Public Use
  Company Number: US-MERCK-0603USA02233

PATIENT
  Age: 60 Year
  Sex: Female
  Weight: 80 kg

DRUGS (6)
  1. VIOXX [Suspect]
     Indication: ARTHRITIS
     Route: 048
     Dates: start: 20020101, end: 20040101
  2. VIOXX [Suspect]
     Route: 048
     Dates: start: 20020101, end: 20040101
  3. AMITRIPTYLIN [Concomitant]
     Indication: DEAFNESS NEUROSENSORY
     Route: 065
     Dates: start: 20020101
  4. CELEXA [Concomitant]
     Route: 065
     Dates: start: 20020101
  5. TYLENOL (CAPLET) [Concomitant]
     Route: 065
  6. ADVIL [Concomitant]
     Route: 048

REACTIONS (6)
  - ARTHRITIS [None]
  - ARTHROPATHY [None]
  - CEREBROVASCULAR ACCIDENT [None]
  - DEAFNESS NEUROSENSORY [None]
  - EMOTIONAL DISTRESS [None]
  - TRANSIENT ISCHAEMIC ATTACK [None]
